FAERS Safety Report 12327345 (Version 1)
Quarter: 2016Q2

REPORT INFORMATION
  Report Type: Report from Study
  Country: BR (occurrence: BR)
  Receive Date: 20160503
  Receipt Date: 20160503
  Transmission Date: 20160815
  Serious: Yes (Other)
  Sender: FDA-Public Use
  Company Number: BR-JNJFOC-20160425353

PATIENT
  Sex: Female

DRUGS (1)
  1. REMICADE [Suspect]
     Active Substance: INFLIXIMAB
     Indication: PSORIATIC ARTHROPATHY
     Route: 042
     Dates: start: 2013, end: 201510

REACTIONS (8)
  - Asthenia [Unknown]
  - Asphyxia [Unknown]
  - Dyspnoea [Unknown]
  - Hypersomnia [Unknown]
  - Infusion related reaction [Unknown]
  - Hypersensitivity [Unknown]
  - Cough [Unknown]
  - White blood cell count decreased [Unknown]
